FAERS Safety Report 16917708 (Version 3)
Quarter: 2019Q4

REPORT INFORMATION
  Report Type: Report from Study
  Country: BE (occurrence: BE)
  Receive Date: 20191015
  Receipt Date: 20191120
  Transmission Date: 20200122
  Serious: No
  Sender: FDA-Public Use
  Company Number: BE-BEH-2019108110

PATIENT
  Sex: Female

DRUGS (1)
  1. HIZENTRA [Suspect]
     Active Substance: HUMAN IMMUNOGLOBULIN G
     Dosage: 6 GRAM (30 ML)
     Route: 058
     Dates: start: 20191008

REACTIONS (2)
  - Hypersensitivity [Unknown]
  - Skin reaction [Unknown]

NARRATIVE: CASE EVENT DATE: 2019
